FAERS Safety Report 7374694-5 (Version None)
Quarter: 2011Q1

REPORT INFORMATION
  Report Type: 
  Country: None (occurrence: None)
  Receive Date: 20110325
  Receipt Date: 20100916
  Transmission Date: 20110831
  Serious: No
  Sender: FDA-Public Use
  Company Number: US-MYLANLABS-2010S1014168

PATIENT
  Sex: Male
  Weight: 111.13 kg

DRUGS (8)
  1. ACETAMINOPHEN AND HYDROCODONE BITARTRATE [Concomitant]
     Indication: BREAKTHROUGH PAIN
     Dosage: 10/500MG, 2 TABLETS PRN
     Route: 048
     Dates: start: 20050101
  2. FOSINOPRIL /00915302/ [Concomitant]
     Indication: RENAL DISORDER
     Route: 048
     Dates: start: 20080101
  3. FENTANYL-100 [Suspect]
     Indication: BACK PAIN
     Dosage: Q72H, THEN Q48H
     Route: 062
     Dates: start: 20080101
  4. FENTANYL-100 [Suspect]
     Indication: PAIN IN EXTREMITY
     Dosage: Q72H, THEN Q48H
     Route: 062
     Dates: start: 20080101
  5. ASPIRIN [Concomitant]
     Indication: CARDIAC DISORDER
     Route: 048
  6. MULTIVITAMIN [Concomitant]
     Route: 048
  7. TRIAMTERENE AND HYDROCHLOROTHIAZIDE [Concomitant]
     Indication: HYPERTENSION
     Dosage: 25/37.5MG
     Route: 048
     Dates: start: 20050101
  8. HYDRALAZINE HCL [Concomitant]
     Indication: HYPERTENSION
     Route: 048
     Dates: start: 20080101

REACTIONS (6)
  - WITHDRAWAL SYNDROME [None]
  - FATIGUE [None]
  - AGITATION [None]
  - INSOMNIA [None]
  - APPLICATION SITE ERYTHEMA [None]
  - INCORRECT DRUG ADMINISTRATION DURATION [None]
